FAERS Safety Report 10184001 (Version 1)
Quarter: 2014Q2

REPORT INFORMATION
  Report Type: Spontaneous
  Country: FR (occurrence: FR)
  Receive Date: 20140520
  Receipt Date: 20140520
  Transmission Date: 20141212
  Serious: Yes (Hospitalization)
  Sender: FDA-Public Use
  Company Number: FR-ACTAVIS-2014-10317

PATIENT
  Age: 84 Year
  Sex: Female

DRUGS (5)
  1. LEVETIRACETAM (UNKNOWN) [Suspect]
     Indication: EPILEPSY
     Dosage: 1250 MG, DAILY
     Route: 065
  2. LEVETIRACETAM (UNKNOWN) [Suspect]
     Dosage: 1000 MG, DAILY
     Route: 065
  3. LOPRAZOLAM [Concomitant]
     Indication: PRODUCT USED FOR UNKNOWN INDICATION
     Dosage: 1 MG, DAILY
     Route: 065
  4. FUROSEMIDE [Concomitant]
     Indication: PRODUCT USED FOR UNKNOWN INDICATION
     Dosage: 20 MG, DAILY
     Route: 065
  5. LAMOTRIGINE [Concomitant]
     Indication: EPILEPSY
     Dosage: 100 MG, DAILY
     Route: 065

REACTIONS (1)
  - Metabolic encephalopathy [Recovered/Resolved]
